FAERS Safety Report 17426393 (Version 1)
Quarter: 2020Q1

REPORT INFORMATION
  Report Type: Spontaneous
  Country: FR (occurrence: FR)
  Receive Date: 20200218
  Receipt Date: 20200218
  Transmission Date: 20200409
  Serious: Yes (Life-Threatening)
  Sender: FDA-Public Use
  Company Number: FR-TEVA-2020-FR-1186947

PATIENT
  Age: 69 Year
  Sex: Female
  Weight: 64 kg

DRUGS (1)
  1. DONEPEZIL (CHLORHYDRATE DE) [Suspect]
     Active Substance: DONEPEZIL HYDROCHLORIDE
     Indication: DEMENTIA WITH LEWY BODIES
     Dosage: 10 MG
     Route: 048
     Dates: start: 20160101, end: 20191217

REACTIONS (1)
  - Seizure [Recovered/Resolved]

NARRATIVE: CASE EVENT DATE: 20191217
